FAERS Safety Report 22266923 (Version 1)
Quarter: 2023Q2

REPORT INFORMATION
  Report Type: Spontaneous
  Country: JP (occurrence: JP)
  Receive Date: 20230428
  Receipt Date: 20230428
  Transmission Date: 20230722
  Serious: Yes (Other)
  Sender: FDA-Public Use
  Company Number: JP-VIATRISJAPAN-2023M1044110AA

PATIENT
  Age: 8 Decade

DRUGS (1)
  1. SOLANAX [Suspect]
     Active Substance: ALPRAZOLAM
     Indication: Insomnia
     Dosage: BEFORE GOING TO BED AT NIGHT
     Route: 048

REACTIONS (2)
  - Dementia [Unknown]
  - Palpitations [Unknown]
